FAERS Safety Report 7149435-7 (Version None)
Quarter: 2010Q4

REPORT INFORMATION
  Report Type: 
  Country: None (occurrence: None)
  Receive Date: 20101209
  Receipt Date: 20100820
  Transmission Date: 20110411
  Serious: No
  Sender: FDA-Public Use
  Company Number: US-KINGPHARMUSA00001-K201001067

PATIENT
  Age: 79 Year
  Sex: Female
  Weight: 54.422 kg

DRUGS (2)
  1. EMBEDA [Suspect]
     Indication: POST LAMINECTOMY SYNDROME
     Dosage: 30 MG, QD
     Dates: start: 20100801, end: 20100801
  2. CARDIAC THERAPY [Concomitant]
     Indication: CARDIAC DISORDER

REACTIONS (3)
  - DRUG HYPERSENSITIVITY [None]
  - NAUSEA [None]
  - VOMITING [None]
